FAERS Safety Report 7234427-X (Version None)
Quarter: 2011Q1

REPORT INFORMATION
  Report Type: 
  Country: None (occurrence: None)
  Receive Date: 20110119
  Receipt Date: 20110106
  Transmission Date: 20110831
  Serious: Yes (Other)
  Sender: FDA-Public Use
  Company Number: US-ELI_LILLY_AND_COMPANY-US201011000757

PATIENT
  Age: 55 Year
  Sex: Male

DRUGS (12)
  1. WELLBUTRIN [Concomitant]
     Dosage: 150 MG, 2/D
  2. CYMBALTA [Suspect]
     Indication: MAJOR DEPRESSION
     Dosage: UNK, UNKNOWN
     Dates: start: 20070101
  3. KLONOPIN [Concomitant]
     Dosage: 1 MG, UNK
  4. IMODIUM [Concomitant]
     Dosage: UNK, 4/D
  5. CYMBALTA [Suspect]
     Dosage: 120 MG, DAILY (1/D)
  6. IRON [Concomitant]
  7. SEROQUEL [Concomitant]
     Dosage: 100 MG, UNK
  8. SIMVASTATIN [Concomitant]
     Dosage: 20 MG, UNK
  9. LISINOPRIL [Concomitant]
     Dosage: 20 MG, UNK
  10. CYMBALTA [Suspect]
     Dosage: 180 MG, DAILY (1/D)
  11. LORTADINE [Concomitant]
     Dosage: 10 MG, UNK
  12. MULTI-VITAMIN [Concomitant]

REACTIONS (5)
  - DIVERTICULITIS [None]
  - DEPRESSED MOOD [None]
  - OVERDOSE [None]
  - DRUG INEFFECTIVE [None]
  - GASTROINTESTINAL HYPERMOTILITY [None]
